FAERS Safety Report 14455299 (Version 1)
Quarter: 2018Q1

REPORT INFORMATION
  Report Type: Spontaneous
  Country: DE (occurrence: DE)
  Receive Date: 20180129
  Receipt Date: 20180129
  Transmission Date: 20180509
  Serious: Yes (Hospitalization, Other)
  Sender: FDA-Public Use
  Company Number: DE-ALLERGAN-1804304US

PATIENT

DRUGS (1)
  1. OZURDEX [Suspect]
     Active Substance: DEXAMETHASONE
     Indication: PRODUCT USED FOR UNKNOWN INDICATION
     Dosage: 0.7 MG, SINGLE
     Route: 031

REACTIONS (7)
  - Wrong technique in device usage process [Unknown]
  - Visual impairment [Unknown]
  - Eye injury [Unknown]
  - Complication of device insertion [Unknown]
  - Device malfunction [Unknown]
  - Vitreous haemorrhage [Unknown]
  - Retinal injury [Unknown]
